FAERS Safety Report 16720836 (Version 1)
Quarter: 2019Q3

REPORT INFORMATION
  Report Type: Spontaneous
  Country: US (occurrence: US)
  Receive Date: 20190702
  Receipt Date: 20190702
  Transmission Date: 20191005
  Serious: Yes (Death)
  Sender: FDA-Public Use
  Company Number: None

PATIENT
  Age: 72 Year
  Sex: Male

DRUGS (1)
  1. HYDROCHLOROTHIAZIDE 25MG UNICHEM [Suspect]
     Active Substance: HYDROCHLOROTHIAZIDE
     Indication: ISCHAEMIC HEART DISEASE PROPHYLAXIS
     Dosage: ?          QUANTITY:0.5 DF DOSAGE FORM;?
     Route: 048
     Dates: end: 20180602

REACTIONS (8)
  - Sudden death [None]
  - Product complaint [None]
  - Headache [None]
  - Nausea [None]
  - Abdominal pain upper [None]
  - Insomnia [None]
  - Dizziness [None]
  - Nervous system disorder [None]

NARRATIVE: CASE EVENT DATE: 20180602
